FAERS Safety Report 18714726 (Version 7)
Quarter: 2022Q1

REPORT INFORMATION
  Report Type: Other
  Country: JP (occurrence: JP)
  Receive Date: 20210108
  Receipt Date: 20220217
  Transmission Date: 20220423
  Serious: Yes (Hospitalization, Other)
  Sender: FDA-Public Use
  Company Number: JP-CHUGAI-A2020055906ROCHE

PATIENT
  Age: 56 Year
  Sex: Male
  Weight: 108 kg

DRUGS (61)
  1. MYCOPHENOLATE MOFETIL [Suspect]
     Active Substance: MYCOPHENOLATE MOFETIL
     Indication: Prophylaxis against transplant rejection
     Dosage: DOSE INTERVAL UNCERTAINTY
     Route: 048
     Dates: start: 20200401, end: 20200407
  2. MYCOPHENOLATE MOFETIL [Suspect]
     Active Substance: MYCOPHENOLATE MOFETIL
     Dosage: DOSE INTERVAL UNCERTAINTY
     Route: 048
     Dates: start: 20200409, end: 20200421
  3. MYCOPHENOLATE MOFETIL [Suspect]
     Active Substance: MYCOPHENOLATE MOFETIL
     Dosage: DOSE INTERVAL UNCERTAINTY
     Route: 048
     Dates: start: 20200422, end: 20200625
  4. MYCOPHENOLATE MOFETIL [Suspect]
     Active Substance: MYCOPHENOLATE MOFETIL
     Dosage: DOSE INTERVAL UNCERTAINTY
     Route: 048
     Dates: start: 20200626, end: 20200702
  5. MYCOPHENOLATE MOFETIL [Suspect]
     Active Substance: MYCOPHENOLATE MOFETIL
     Dosage: DOSE INTERVAL UNCERTAINTY
     Route: 048
     Dates: start: 20200703, end: 20200914
  6. MYCOPHENOLATE MOFETIL [Suspect]
     Active Substance: MYCOPHENOLATE MOFETIL
     Dosage: DOSE INTERVAL UNCERTAINTY
     Route: 048
     Dates: start: 20200915
  7. MYCOPHENOLATE MOFETIL [Suspect]
     Active Substance: MYCOPHENOLATE MOFETIL
     Dosage: 1500 MILLIGRAM/DAY
     Route: 048
     Dates: start: 20201006, end: 20201214
  8. MYCOPHENOLATE MOFETIL [Suspect]
     Active Substance: MYCOPHENOLATE MOFETIL
     Dosage: 500 MILLIGRAM/DAY
     Route: 048
     Dates: start: 20201215, end: 20201224
  9. RITUXIMAB [Suspect]
     Active Substance: RITUXIMAB
     Indication: Prophylaxis against transplant rejection
     Route: 041
     Dates: start: 20200325, end: 20200325
  10. MEDROL [Suspect]
     Active Substance: METHYLPREDNISOLONE
     Indication: Product used for unknown indication
     Dosage: DOSE INTERVAL UNCERTANITY
     Route: 048
     Dates: start: 20200508, end: 20200521
  11. MEDROL [Suspect]
     Active Substance: METHYLPREDNISOLONE
     Dosage: DOSE INTERVAL UNCERTANITY
     Route: 048
     Dates: start: 20200522, end: 20200622
  12. MEDROL [Suspect]
     Active Substance: METHYLPREDNISOLONE
     Dosage: DOSE INTERVAL UNCERTANITY
     Route: 048
     Dates: start: 20200623, end: 20200702
  13. MEDROL [Suspect]
     Active Substance: METHYLPREDNISOLONE
     Dosage: DOSE INTERVAL UNCERTANITY
     Route: 048
     Dates: start: 20200703, end: 20200713
  14. MEDROL [Suspect]
     Active Substance: METHYLPREDNISOLONE
     Dosage: DOSE INTERVAL UNCERTANITY
     Route: 048
     Dates: start: 20200714, end: 202007
  15. MEDROL [Suspect]
     Active Substance: METHYLPREDNISOLONE
     Dosage: DOSE INTERVAL UNCERTANITY
     Route: 048
     Dates: start: 20200731, end: 20200818
  16. MEDROL [Suspect]
     Active Substance: METHYLPREDNISOLONE
     Dosage: DOSE INTERVAL UNCERTANITY
     Route: 048
     Dates: start: 20200819, end: 20200914
  17. MEDROL [Suspect]
     Active Substance: METHYLPREDNISOLONE
     Dosage: 16 MILLIGRAM/DAY
     Route: 048
     Dates: start: 20201006, end: 20201019
  18. MEDROL [Suspect]
     Active Substance: METHYLPREDNISOLONE
     Dosage: 14 MILLIGRAM/DAY
     Route: 048
     Dates: start: 20201020, end: 20201104
  19. MEDROL [Suspect]
     Active Substance: METHYLPREDNISOLONE
     Dosage: 10 MILLIGRAM/DAY
     Route: 048
     Dates: start: 20201105, end: 20201116
  20. MEDROL [Suspect]
     Active Substance: METHYLPREDNISOLONE
     Dosage: 6 MILLIGRAM/DAY
     Route: 048
     Dates: start: 20201117, end: 20210118
  21. MEDROL [Suspect]
     Active Substance: METHYLPREDNISOLONE
     Dosage: 4 MILLIGRAM/DAY
     Route: 048
     Dates: start: 20210119, end: 20210426
  22. MEDROL [Suspect]
     Active Substance: METHYLPREDNISOLONE
     Dosage: 2 MILLIGRAM/DAY
     Route: 048
     Dates: start: 20210427
  23. TACROLIMUS [Suspect]
     Active Substance: TACROLIMUS
     Indication: Product used for unknown indication
     Dosage: DOSAGE IS UNCERTAIN
     Route: 048
     Dates: start: 20200401
  24. TACROLIMUS [Suspect]
     Active Substance: TACROLIMUS
     Route: 048
     Dates: start: 20200409
  25. SOLU-MEDROL [Suspect]
     Active Substance: METHYLPREDNISOLONE SODIUM SUCCINATE
     Indication: Product used for unknown indication
     Dosage: DOSE INTERVAL UNCERTAINTY
     Route: 042
     Dates: start: 20200408, end: 20200408
  26. SOLU-MEDROL [Suspect]
     Active Substance: METHYLPREDNISOLONE SODIUM SUCCINATE
     Route: 042
     Dates: start: 20200409, end: 20200409
  27. SOLU-MEDROL [Suspect]
     Active Substance: METHYLPREDNISOLONE SODIUM SUCCINATE
     Dosage: DOSE INTERVAL UNCERTAINTY
     Route: 042
     Dates: start: 20200410, end: 20200410
  28. SOLU-MEDROL [Suspect]
     Active Substance: METHYLPREDNISOLONE SODIUM SUCCINATE
     Dosage: DOSE INTERVAL UNCERTAINTY
     Route: 042
     Dates: start: 20200411, end: 20200411
  29. SOLU-MEDROL [Suspect]
     Active Substance: METHYLPREDNISOLONE SODIUM SUCCINATE
     Dosage: DOSE INTERVAL UNCERTAINTY
     Route: 042
     Dates: start: 20200412, end: 20200412
  30. SOLU-MEDROL [Suspect]
     Active Substance: METHYLPREDNISOLONE SODIUM SUCCINATE
     Dosage: DOSE INTERVAL UNCERTAINTY
     Route: 042
     Dates: start: 20200413, end: 20200414
  31. SOLU-MEDROL [Suspect]
     Active Substance: METHYLPREDNISOLONE SODIUM SUCCINATE
     Dosage: DOSE INTERVAL UNCERTAINTY
     Route: 042
     Dates: start: 20200415, end: 20200415
  32. SOLU-MEDROL [Suspect]
     Active Substance: METHYLPREDNISOLONE SODIUM SUCCINATE
     Dosage: DOSE INTERVAL UNCERTAINTY
     Route: 042
     Dates: start: 20200416, end: 20200417
  33. SOLU-MEDROL [Suspect]
     Active Substance: METHYLPREDNISOLONE SODIUM SUCCINATE
     Dosage: DOSE INTERVAL UNCERTAINTY
     Route: 042
     Dates: start: 20200418, end: 20200422
  34. SOLU-MEDROL [Suspect]
     Active Substance: METHYLPREDNISOLONE SODIUM SUCCINATE
     Dosage: DOSE INTERVAL UNCERTAINTY
     Route: 042
     Dates: start: 20200423, end: 20200507
  35. SOLU-MEDROL [Suspect]
     Active Substance: METHYLPREDNISOLONE SODIUM SUCCINATE
     Dosage: DOSE INTERVAL UNCERTAINTY
     Route: 042
     Dates: start: 20200915, end: 20200915
  36. SOLU-MEDROL [Suspect]
     Active Substance: METHYLPREDNISOLONE SODIUM SUCCINATE
     Dosage: DOSE INTERVAL UNCERTAINTY
     Route: 042
     Dates: start: 20200916, end: 20200916
  37. SOLU-MEDROL [Suspect]
     Active Substance: METHYLPREDNISOLONE SODIUM SUCCINATE
     Dosage: DOSE INTERVAL UNCERTAINTY
     Route: 042
     Dates: start: 20200917, end: 20200917
  38. SOLU-MEDROL [Suspect]
     Active Substance: METHYLPREDNISOLONE SODIUM SUCCINATE
     Dosage: DOSE INTERVAL UNCERTAINTY
     Route: 042
     Dates: start: 20200918, end: 20200918
  39. SOLU-MEDROL [Suspect]
     Active Substance: METHYLPREDNISOLONE SODIUM SUCCINATE
     Dosage: DOSE INTERVAL UNCERTAINTY
     Route: 042
     Dates: start: 20200919, end: 20200919
  40. SOLU-MEDROL [Suspect]
     Active Substance: METHYLPREDNISOLONE SODIUM SUCCINATE
     Dosage: DOSE INTERVAL UNCERTAINTY
     Route: 042
     Dates: start: 20200920, end: 20200920
  41. SOLU-MEDROL [Suspect]
     Active Substance: METHYLPREDNISOLONE SODIUM SUCCINATE
     Dosage: DOSE INTERVAL UNCERTAINTY
     Route: 042
     Dates: start: 20200921, end: 20200928
  42. SPIRONOLACTONE [Concomitant]
     Active Substance: SPIRONOLACTONE
     Indication: Non-alcoholic steatohepatitis
     Dosage: DOSE INTERVAL UNCERTAINTY
     Route: 048
     Dates: end: 20200407
  43. SPIRONOLACTONE [Concomitant]
     Active Substance: SPIRONOLACTONE
     Indication: Hepatic cirrhosis
  44. FUROSEMIDE [Concomitant]
     Active Substance: FUROSEMIDE
     Indication: Non-alcoholic steatohepatitis
     Dosage: DOSE INTERVAL UNCERTAINTY
     Route: 048
     Dates: end: 20200407
  45. FUROSEMIDE [Concomitant]
     Active Substance: FUROSEMIDE
     Indication: Hepatic cirrhosis
  46. LINAGLIPTIN [Concomitant]
     Active Substance: LINAGLIPTIN
     Indication: Diabetes mellitus
     Dosage: DOSE INTERVAL UNCERTAINTY
     Route: 048
     Dates: end: 20200407
  47. SAMSCA [Concomitant]
     Active Substance: TOLVAPTAN
     Indication: Nonalcoholic fatty liver disease
     Dosage: DOSE INTERVAL UNCERTAINTY
     Route: 048
     Dates: end: 20200407
  48. SAMSCA [Concomitant]
     Active Substance: TOLVAPTAN
     Indication: Hepatic cirrhosis
  49. NEXIUM [Concomitant]
     Active Substance: ESOMEPRAZOLE MAGNESIUM
     Indication: Nonalcoholic fatty liver disease
     Dosage: DOSE INTERVAL UNCERTAINTY
     Route: 048
     Dates: end: 20200407
  50. NEXIUM [Concomitant]
     Active Substance: ESOMEPRAZOLE MAGNESIUM
     Indication: Hepatic cirrhosis
  51. AMINO ACIDS, SOURCE UNSPECIFIED [Concomitant]
     Active Substance: AMINO ACIDS, SOURCE UNSPECIFIED
     Indication: Nonalcoholic fatty liver disease
     Dosage: DOSE INTERVAL UNCERTAINTY
     Route: 048
     Dates: end: 20200407
  52. AMINO ACIDS, SOURCE UNSPECIFIED [Concomitant]
     Active Substance: AMINO ACIDS, SOURCE UNSPECIFIED
     Indication: Hepatic cirrhosis
  53. LEVOCARNITINE [Concomitant]
     Active Substance: LEVOCARNITINE
     Indication: Nonalcoholic fatty liver disease
     Dosage: DOSE INTERVAL UNCERTAINTY
     Route: 048
     Dates: end: 20200407
  54. LEVOCARNITINE [Concomitant]
     Active Substance: LEVOCARNITINE
     Indication: Hepatic cirrhosis
  55. URSO [Concomitant]
     Active Substance: URSODIOL
     Indication: Nonalcoholic fatty liver disease
     Dosage: 600 MILLIGRAM/DAY
     Route: 048
     Dates: start: 20201006
  56. URSO [Concomitant]
     Active Substance: URSODIOL
     Indication: Hepatic cirrhosis
  57. MIYA-BM [Concomitant]
     Active Substance: CLOSTRIDIUM BUTYRICUM SPORES STRAIN M-55
     Indication: Gastroenteritis
     Dosage: 60 MILLIGRAM/DAY
     Route: 048
     Dates: start: 20201006
  58. AZILSARTAN KAMEDOXOMIL [Concomitant]
     Active Substance: AZILSARTAN KAMEDOXOMIL
     Indication: Hypertension
     Dosage: 10 MILLIGRAM/DAY
     Route: 048
     Dates: start: 20201006
  59. SOLU-CORTEF [Concomitant]
     Active Substance: HYDROCORTISONE SODIUM SUCCINATE
     Indication: Infusion related reaction
     Dates: start: 20200325, end: 20200325
  60. POLARAMINE [Concomitant]
     Active Substance: DEXCHLORPHENIRAMINE MALEATE
     Indication: Infusion related reaction
     Dates: start: 20200325, end: 20200325
  61. ACETAMINOPHEN [Concomitant]
     Active Substance: ACETAMINOPHEN
     Indication: Infusion related reaction
     Dates: start: 20200325, end: 20200325

REACTIONS (4)
  - Cholangitis [Recovering/Resolving]
  - Bacteraemia [Recovering/Resolving]
  - Transplant rejection [Recovering/Resolving]
  - Klebsiella infection [Unknown]

NARRATIVE: CASE EVENT DATE: 20200424
